FAERS Safety Report 8601350-5 (Version None)
Quarter: 2012Q3

REPORT INFORMATION
  Report Type: 
  Country: None (occurrence: None)
  Receive Date: 20120817
  Receipt Date: 20120810
  Transmission Date: 20120928
  Serious: Yes (Other)
  Sender: FDA-Public Use
  Company Number: US-JNJFOC-20120805892

PATIENT
  Sex: Male

DRUGS (15)
  1. AMLODIPINE [Concomitant]
  2. CALCIUM WITH VITAMIN D [Concomitant]
  3. MAG OX [Concomitant]
  4. OMEPRAZOLE [Concomitant]
  5. SIMVASTATIN [Concomitant]
  6. PERCOCET [Concomitant]
  7. CARVEDILOL [Concomitant]
  8. MIRALAX [Concomitant]
  9. AMBIEN [Concomitant]
  10. IRON [Concomitant]
  11. XARELTO [Suspect]
     Indication: CEREBROVASCULAR ACCIDENT PROPHYLAXIS
     Route: 048
     Dates: start: 20120101, end: 20120101
  12. XARELTO [Suspect]
     Indication: ATRIAL FIBRILLATION
     Route: 048
     Dates: start: 20120101, end: 20120101
  13. FUROSEMIDE [Concomitant]
  14. DUONEB [Concomitant]
     Route: 055
  15. ZOFRAN [Concomitant]

REACTIONS (2)
  - ANGIOEDEMA [None]
  - LIP SWELLING [None]
